FAERS Safety Report 9741017 (Version 2)
Quarter: 2014Q1

REPORT INFORMATION
  Report Type: Spontaneous
  Country: JP (occurrence: JP)
  Receive Date: 20131209
  Receipt Date: 20140326
  Transmission Date: 20141002
  Serious: Yes (Hospitalization)
  Sender: FDA-Public Use
  Company Number: PHHY2013JP141914

PATIENT
  Age: 67 Year
  Sex: Male

DRUGS (2)
  1. BICALUTAMIDE SANDOZ [Suspect]
     Indication: PROSTATE CANCER
     Dates: start: 2012
  2. VILDAGLIPTIN [Concomitant]
     Indication: DIABETES MELLITUS
     Dosage: 100 MG, UNK

REACTIONS (1)
  - Diabetic ketoacidosis [Recovering/Resolving]
